FAERS Safety Report 13063662 (Version 2)
Quarter: 2017Q1

REPORT INFORMATION
  Report Type: Spontaneous
  Country: US (occurrence: US)
  Receive Date: 20161227
  Receipt Date: 20170116
  Transmission Date: 20170428
  Serious: No
  Sender: FDA-Public Use
  Company Number: US-PFIZER INC-2016582701

PATIENT
  Age: 86 Year
  Sex: Female

DRUGS (2)
  1. MORPHINE SULFATE. [Suspect]
     Active Substance: MORPHINE SULFATE
  2. BRONTEX /00693301/ [Suspect]
     Active Substance: CODEINE\GUAIFENESIN
     Dosage: UNK

REACTIONS (1)
  - Drug hypersensitivity [Unknown]
